FAERS Safety Report 9219067 (Version 2)
Quarter: 2013Q2

REPORT INFORMATION
  Report Type: Spontaneous
  Country: GB (occurrence: GB)
  Receive Date: 20130409
  Receipt Date: 20130521
  Transmission Date: 20140414
  Serious: Yes (Other)
  Sender: FDA-Public Use
  Company Number: PHFR2013GB002098

PATIENT
  Age: 66 Year
  Sex: Male

DRUGS (5)
  1. CLOZARIL [Suspect]
     Indication: SCHIZOPHRENIA
     Dosage: 300 MG (DAILY)
     Route: 048
     Dates: start: 20120130
  2. VALPROATE SODIUM [Concomitant]
     Indication: EPILEPSY
     Dosage: 1200 MG (DAILY)
     Route: 048
  3. SERTRALINE [Concomitant]
     Indication: DEPRESSION
     Dosage: 50 MG (DAILY)
     Route: 048
  4. AMLODIPINE [Concomitant]
     Indication: HYPERTENSION
     Dosage: 5 MG (DAILY)
     Route: 048
  5. SIMVASTATIN [Concomitant]
     Indication: HYPERCHOLESTEROLAEMIA
     Dosage: 20 MG (DAILY)
     Route: 048

REACTIONS (3)
  - Renal failure acute [Recovered/Resolved]
  - White blood cell count increased [Recovered/Resolved]
  - Neutrophil count increased [Recovered/Resolved]
